FAERS Safety Report 9909811 (Version 2)
Quarter: 2014Q1

REPORT INFORMATION
  Report Type: Spontaneous
  Country: US (occurrence: US)
  Receive Date: 20140219
  Receipt Date: 20140219
  Transmission Date: 20141002
  Serious: No
  Sender: FDA-Public Use
  Company Number: US-GILEAD-2012-0051295

PATIENT
  Sex: Female

DRUGS (1)
  1. LETAIRIS [Suspect]
     Indication: PULMONARY HYPERTENSION
     Dosage: 10 MG, UNK
     Route: 048
     Dates: start: 20120126

REACTIONS (6)
  - Nasopharyngitis [Unknown]
  - Dysphagia [Unknown]
  - Memory impairment [Unknown]
  - Syncope [Unknown]
  - Dyspnoea exertional [Unknown]
  - Headache [Unknown]
